FAERS Safety Report 6341400-2 (Version None)
Quarter: 2009Q3

REPORT INFORMATION
  Report Type: 
  Country: None (occurrence: None)
  Receive Date: 20090904
  Receipt Date: 20090827
  Transmission Date: 20100115
  Serious: Yes (Other)
  Sender: FDA-Public Use
  Company Number: US-ELI_LILLY_AND_COMPANY-US200907006417

PATIENT
  Sex: Female

DRUGS (2)
  1. CYMBALTA [Suspect]
     Indication: DEPRESSION
     Dosage: 30 MG, UNK
     Dates: start: 20090213, end: 20090221
  2. IMITREX [Concomitant]
     Indication: MIGRAINE
     Dosage: 100 MG, AS NEEDED
     Dates: start: 20071201

REACTIONS (2)
  - ANASTOMOTIC ULCER PERFORATION [None]
  - OFF LABEL USE [None]
